FAERS Safety Report 7721751-7 (Version None)
Quarter: 2011Q3

REPORT INFORMATION
  Report Type: 
  Country: None (occurrence: None)
  Receive Date: 20110831
  Receipt Date: 20110818
  Transmission Date: 20111222
  Serious: Yes (Other)
  Sender: FDA-Public Use
  Company Number: AU-TYCO HEALTHCARE/MALLINCKRODT-T201100938

PATIENT
  Age: 44 Year
  Sex: Female
  Weight: 81 kg

DRUGS (7)
  1. EXALGO [Suspect]
     Indication: PAIN
     Dosage: 4 MG, SINGLE
     Route: 048
     Dates: start: 20110420
  2. DURAGESIC-100 [Concomitant]
     Dosage: 200 UG/HR, UNK
  3. MS CONTIN [Concomitant]
     Dosage: 120 MG, QD
  4. VALIUM [Concomitant]
     Indication: ANXIETY
     Dosage: 5 MG, UNK
     Dates: start: 20110701
  5. CYMBALTA [Suspect]
     Indication: DEPRESSION
     Dosage: 1 DOSE, TWO IN ONE DAY
     Dates: start: 20090101, end: 20110701
  6. OXYCODONE HCL [Concomitant]
     Dosage: UNK
  7. OXYCODONE HCL [Concomitant]
     Dosage: 5 MG, 2 IN 1 DAY
     Dates: start: 20110330

REACTIONS (1)
  - SEROTONIN SYNDROME [None]
